FAERS Safety Report 19593563 (Version 1)
Quarter: 2021Q3

REPORT INFORMATION
  Report Type: Spontaneous
  Country: US (occurrence: US)
  Receive Date: 20210722
  Receipt Date: 20210722
  Transmission Date: 20211014
  Serious: No
  Sender: FDA-Public Use
  Company Number: US-JNJFOC-20210743886

PATIENT
  Sex: Male

DRUGS (1)
  1. RISPERDAL [Suspect]
     Active Substance: RISPERIDONE
     Indication: ATTENTION DEFICIT HYPERACTIVITY DISORDER
     Dosage: 0.25 MG 1 TABLET IN AM AND 2 TABLET EVERY EVENING
     Route: 048

REACTIONS (4)
  - Off label use [Unknown]
  - Weight increased [Unknown]
  - Increased appetite [Unknown]
  - Product use in unapproved indication [Unknown]
